FAERS Safety Report 5576209-0 (Version None)
Quarter: 2007Q4

REPORT INFORMATION
  Report Type: 
  Country: None (occurrence: None)
  Receive Date: 20071228
  Receipt Date: 20071218
  Transmission Date: 20080405
  Serious: Yes (Hospitalization, Disabling)
  Sender: FDA-Public Use
  Company Number: FR-JNJFOC-20071205812

PATIENT
  Sex: Male

DRUGS (9)
  1. ACETAMINOPHEN AND TRAMADOL HCL [Suspect]
     Indication: BACK PAIN
     Route: 048
  2. COLTRAMYL [Suspect]
     Indication: BACK PAIN
     Route: 048
  3. PREVISCAN [Interacting]
     Indication: THROMBOSIS PROPHYLAXIS
     Route: 048
  4. LASILIX [Concomitant]
     Route: 065
  5. ENANTONE [Concomitant]
     Route: 065
  6. ZYLORIC [Concomitant]
     Route: 065
  7. NITROGLYCERIN [Concomitant]
     Route: 065
  8. POTASSIUM CHLORIDE [Concomitant]
     Route: 065
  9. CORDARONE [Concomitant]
     Route: 065

REACTIONS (4)
  - CEREBROVASCULAR ACCIDENT [None]
  - DRUG INTERACTION [None]
  - INTERNATIONAL NORMALISED RATIO INCREASED [None]
  - PULMONARY OEDEMA [None]
